FAERS Safety Report 5247400-8 (Version None)
Quarter: 2007Q1

REPORT INFORMATION
  Report Type: 
  Country: None (occurrence: None)
  Receive Date: 20070220
  Receipt Date: 20070202
  Transmission Date: 20070707
  Serious: Yes (Other)
  Sender: FDA-Public Use
  Company Number: 236589

PATIENT
  Sex: Female

DRUGS (8)
  1. XOLAIR [Suspect]
     Indication: ASTHMA
     Dates: start: 20050101
  2. PREDNISONE TAB [Concomitant]
  3. THEOPHYLLINE [Concomitant]
  4. ALBUTEROL (ALBUTEROL/ALBUTEROL SULFATE) [Concomitant]
  5. FLOVENT [Concomitant]
  6. NITROGLYCERIN PATCH (NITROGLYCERIN) [Concomitant]
  7. NOVOLOG (INSULIN HUMAN) [Concomitant]
  8. LANTUS [Concomitant]

REACTIONS (3)
  - BRONCHITIS [None]
  - MALAISE [None]
  - RENAL CELL CARCINOMA STAGE UNSPECIFIED [None]
